FAERS Safety Report 7748313-X (Version None)
Quarter: 2011Q3

REPORT INFORMATION
  Report Type: 
  Country: None (occurrence: None)
  Receive Date: 20110913
  Receipt Date: 20110906
  Transmission Date: 20111222
  Serious: Yes (Other)
  Sender: FDA-Public Use
  Company Number: PHHY2011FR79277

PATIENT
  Age: 9 Year
  Sex: Male

DRUGS (3)
  1. URBANYL [Concomitant]
     Dosage: 15 MG, BID
     Dates: start: 20080101
  2. TEGRETOL [Suspect]
     Indication: COMPLEX PARTIAL SEIZURES
     Dosage: 10ML IN THE MORNING, 4ML AT MIDDAY AND 12ML AT NIGHT
     Route: 048
     Dates: start: 20060101
  3. DIACOMIT [Concomitant]
     Dosage: 1 DF, BID
     Dates: start: 20080101

REACTIONS (1)
  - PETIT MAL EPILEPSY [None]
